FAERS Safety Report 7403594-7 (Version None)
Quarter: 2011Q2

REPORT INFORMATION
  Report Type: 
  Country: None (occurrence: None)
  Receive Date: 20110408
  Receipt Date: 20100215
  Transmission Date: 20111010
  Serious: Yes (Other)
  Sender: FDA-Public Use
  Company Number: PHHY2010DE91161

PATIENT

DRUGS (1)
  1. EXTAVIA [Suspect]
     Route: 058

REACTIONS (6)
  - INJECTION SITE PAIN [None]
  - VERTIGO [None]
  - ERYTHEMA [None]
  - GASTROINTESTINAL VIRAL INFECTION [None]
  - WEIGHT DECREASED [None]
  - NAUSEA [None]
